FAERS Safety Report 23249989 (Version 1)
Quarter: 2023Q4

REPORT INFORMATION
  Report Type: Report from Study
  Country: US (occurrence: US)
  Receive Date: 20231201
  Receipt Date: 20231201
  Transmission Date: 20240110
  Serious: Yes (Other)
  Sender: FDA-Public Use
  Company Number: US-ABBVIE-5520186

PATIENT
  Age: 57 Year
  Sex: Male

DRUGS (1)
  1. RINVOQ [Suspect]
     Active Substance: UPADACITINIB
     Indication: Rheumatoid arthritis
     Route: 048
     Dates: start: 20211104, end: 20231114

REACTIONS (2)
  - Brain neoplasm malignant [Recovering/Resolving]
  - Plastic surgery to the face [Recovering/Resolving]

NARRATIVE: CASE EVENT DATE: 20231101
